FAERS Safety Report 11982949 (Version 1)
Quarter: 2016Q1

REPORT INFORMATION
  Report Type: Spontaneous
  Country: US (occurrence: US)
  Receive Date: 20160201
  Receipt Date: 20160201
  Transmission Date: 20160526
  Serious: Yes (Other)
  Sender: FDA-Public Use
  Company Number: US-ACTAVIS-2015-23191

PATIENT
  Sex: Female
  Weight: 82 kg

DRUGS (2)
  1. PREDNISONE (WATSON LABORATORIES) [Suspect]
     Active Substance: PREDNISONE
     Indication: URTICARIA
     Dosage: UNKNOWN
     Route: 065
  2. PREDNISONE (WATSON LABORATORIES) [Suspect]
     Active Substance: PREDNISONE
     Indication: MALAISE

REACTIONS (3)
  - Malaise [Recovered/Resolved]
  - Condition aggravated [Recovered/Resolved]
  - Blood glucose increased [Recovered/Resolved]
